FAERS Safety Report 7657478-X (Version None)
Quarter: 2011Q3

REPORT INFORMATION
  Report Type: 
  Country: None (occurrence: None)
  Receive Date: 20110804
  Receipt Date: 20110726
  Transmission Date: 20111222
  Serious: Yes (Other)
  Sender: FDA-Public Use
  Company Number: HR-ASTRAZENECA-2011SE44708

PATIENT
  Age: 90 Year
  Sex: Male

DRUGS (11)
  1. ACETAMINOPHEN [Concomitant]
     Route: 042
  2. ENOXAPARIN SODIUM [Concomitant]
     Route: 058
  3. KONAKION [Concomitant]
  4. PEPTORAN [Concomitant]
     Route: 042
  5. MEROPENEM [Suspect]
     Indication: PNEUMONIA
     Route: 042
     Dates: start: 20110617, end: 20110620
  6. PIGREL [Concomitant]
     Route: 048
  7. SODIUM CHLORIDE [Concomitant]
     Route: 055
  8. VENTOLIN HFA [Concomitant]
     Route: 055
  9. HALDOL [Concomitant]
     Route: 048
  10. ATROVENT [Concomitant]
     Route: 055
  11. LANITOP [Concomitant]

REACTIONS (1)
  - HEPATIC LESION [None]
